FAERS Safety Report 6712385-1 (Version None)
Quarter: 2010Q2

REPORT INFORMATION
  Report Type: 
  Country: None (occurrence: None)
  Receive Date: 20100505
  Receipt Date: 20100429
  Transmission Date: 20101027
  Serious: Yes (Other)
  Sender: FDA-Public Use
  Company Number: US-ALLERGAN-1005555US

PATIENT
  Age: 50 Year
  Sex: Female

DRUGS (2)
  1. BOTOX COSMETIC [Suspect]
     Indication: SKIN WRINKLING
     Dosage: UNK
     Route: 030
     Dates: start: 20100301, end: 20100301
  2. RESTYLANE [Suspect]
     Indication: SKIN WRINKLING
     Dosage: UNK
     Dates: start: 20100301, end: 20100301

REACTIONS (4)
  - FOREIGN BODY REACTION [None]
  - PAIN [None]
  - PURULENCE [None]
  - SKIN NODULE [None]
